FAERS Safety Report 6057485-7 (Version None)
Quarter: 2009Q1

REPORT INFORMATION
  Report Type: 
  Country: None (occurrence: None)
  Receive Date: 20090126
  Receipt Date: 20090126
  Transmission Date: 20090719
  Serious: Yes (Life-Threatening, Hospitalization, Disabling, Other)
  Sender: FDA-Public Use
  Company Number: None

PATIENT
  Age: 55 Year
  Sex: Female
  Weight: 83.9154 kg

DRUGS (1)
  1. ABILIFY [Suspect]
     Indication: DEPRESSION
     Dosage: 1/ONCE EVERY DAY PO
     Route: 048
     Dates: start: 20061101, end: 20070529

REACTIONS (4)
  - BILIARY TRACT OPERATION [None]
  - CHOLECYSTECTOMY [None]
  - PANCREATITIS [None]
  - SPLENECTOMY [None]
